FAERS Safety Report 10632090 (Version 1)
Quarter: 2014Q4

REPORT INFORMATION
  Report Type: Spontaneous
  Country: US (occurrence: US)
  Receive Date: 20141205
  Receipt Date: 20141205
  Transmission Date: 20150529
  Serious: No
  Sender: FDA-Public Use
  Company Number: US-BRISTOL-MYERS SQUIBB COMPANY-21095658

PATIENT
  Age: 48 Year
  Sex: Female
  Weight: 98.86 kg

DRUGS (13)
  1. IRON [Concomitant]
     Active Substance: IRON
  2. BYETTA [Suspect]
     Active Substance: EXENATIDE
     Dates: start: 20140621
  3. LATUDA [Concomitant]
     Active Substance: LURASIDONE HYDROCHLORIDE
  4. OMEPRAZOLE. [Concomitant]
     Active Substance: OMEPRAZOLE
  5. GLIPIZIDE. [Concomitant]
     Active Substance: GLIPIZIDE
  6. VITAMIN D [Concomitant]
     Active Substance: CHOLECALCIFEROL
  7. ASPIRIN. [Concomitant]
     Active Substance: ASPIRIN
  8. PERCOCET [Concomitant]
     Active Substance: ACETAMINOPHEN\OXYCODONE HYDROCHLORIDE
  9. BUPROPION [Concomitant]
     Active Substance: BUPROPION
  10. ABILIFY [Concomitant]
     Active Substance: ARIPIPRAZOLE
  11. SIMVASTATIN. [Concomitant]
     Active Substance: SIMVASTATIN
  12. METFORMIN [Concomitant]
     Active Substance: METFORMIN HYDROCHLORIDE
  13. ARTANE [Concomitant]
     Active Substance: TRIHEXYPHENIDYL HYDROCHLORIDE

REACTIONS (2)
  - Polymenorrhoea [Unknown]
  - Injection site bruising [Unknown]

NARRATIVE: CASE EVENT DATE: 201406
